FAERS Safety Report 22090039 (Version 3)
Quarter: 2023Q2

REPORT INFORMATION
  Report Type: Spontaneous
  Country: JP (occurrence: None)
  Receive Date: 20230313
  Receipt Date: 20230601
  Transmission Date: 20230721
  Serious: Yes (Death, Life-Threatening, Hospitalization)
  Sender: FDA-Public Use
  Company Number: 2023A040317

PATIENT
  Age: 81 Year
  Sex: Female
  Weight: 41 kg

DRUGS (38)
  1. TAGRISSO [Suspect]
     Active Substance: OSIMERTINIB
     Indication: Non-small cell lung cancer
     Route: 048
     Dates: start: 20221220, end: 20221226
  2. TAGRISSO [Suspect]
     Active Substance: OSIMERTINIB
     Indication: Non-small cell lung cancer
     Route: 048
     Dates: start: 20221227, end: 20230104
  3. SOLU-MEDROL [Suspect]
     Active Substance: METHYLPREDNISOLONE SODIUM SUCCINATE
     Route: 042
     Dates: start: 20230107, end: 20230107
  4. SOLU-MEDROL [Suspect]
     Active Substance: METHYLPREDNISOLONE SODIUM SUCCINATE
     Route: 042
     Dates: start: 20230108, end: 20230110
  5. SOLU-MEDROL [Suspect]
     Active Substance: METHYLPREDNISOLONE SODIUM SUCCINATE
     Route: 042
     Dates: start: 20230111, end: 20230113
  6. SOLU-MEDROL [Suspect]
     Active Substance: METHYLPREDNISOLONE SODIUM SUCCINATE
     Route: 042
     Dates: start: 20230114, end: 20230116
  7. SOLU-MEDROL [Suspect]
     Active Substance: METHYLPREDNISOLONE SODIUM SUCCINATE
     Route: 042
     Dates: start: 20230117, end: 20230119
  8. SOLU-MEDROL [Suspect]
     Active Substance: METHYLPREDNISOLONE SODIUM SUCCINATE
     Route: 042
     Dates: start: 20230120, end: 20230122
  9. SOLU-MEDROL [Suspect]
     Active Substance: METHYLPREDNISOLONE SODIUM SUCCINATE
     Route: 042
     Dates: start: 20230128, end: 20230130
  10. CANRENOATE POTASSIUM [Concomitant]
     Active Substance: CANRENOATE POTASSIUM
     Dosage: 100.0MG UNKNOWN
     Route: 041
  11. DIAMOX SEQUELS [Concomitant]
     Active Substance: ACETAZOLAMIDE
     Dosage: DOSE UNKNOWN
     Route: 042
  12. DEXMEDETOMIDINE [Concomitant]
     Active Substance: DEXMEDETOMIDINE
     Dosage: DOSE UNKNOWN
     Route: 041
  13. PROPOFOL [Concomitant]
     Active Substance: PROPOFOL
     Dosage: DOSE UNKNOWN
     Route: 041
  14. FENTANYL [Concomitant]
     Active Substance: FENTANYL
     Dosage: DOSE UNKNOWN
     Route: 041
  15. LASIX [Concomitant]
     Active Substance: FUROSEMIDE
     Dosage: DOSE UNKNOWN
     Route: 041
  16. NOREPINEPHRINE [Concomitant]
     Active Substance: NOREPINEPHRINE
     Dosage: DOSE UNKNOWN
     Route: 041
  17. SAMTASU [Concomitant]
     Dosage: DOSE UNKNOWN
     Route: 041
  18. DORMICUM [Concomitant]
     Dosage: DOSE UNKNOWN
     Route: 041
  19. FESIN [Concomitant]
     Dosage: DOSE UNKNOWN
     Route: 042
  20. DIGILANOGEN C [Concomitant]
     Dosage: DOSE UNKNOWN
     Route: 042
  21. VASOLAN [Concomitant]
     Dosage: DOSE UNKNOWN
     Route: 041
  22. SOLDEM 3A [Concomitant]
     Active Substance: CARBOHYDRATES\POTASSIUM CHLORIDE\SODIUM CHLORIDE\SODIUM LACTATE
     Dosage: DOSE UNKNOWN
     Route: 041
  23. DEXTROSE [Concomitant]
     Active Substance: DEXTROSE\DEXTROSE MONOHYDRATE
     Dosage: DOSE UNKNOWN
  24. NEOLAMIN 3B [Concomitant]
     Dosage: DOSE UNKNOWN
     Route: 041
  25. SODIUM CHLORIDE [Concomitant]
     Active Substance: SODIUM CHLORIDE
     Dosage: DOSE UNKNOWN
     Route: 041
  26. EPINEPHRINE [Concomitant]
     Active Substance: EPINEPHRINE
     Dosage: DOSE UNKNOWN
     Route: 030
  27. OMEPRAZOLE [Concomitant]
     Active Substance: OMEPRAZOLE
     Dosage: DOSE UNKNOWN
     Route: 042
  28. ROCURONIUM BROMIDE [Concomitant]
     Active Substance: ROCURONIUM BROMIDE
     Dosage: DOSE UNKNOWN
     Route: 041
  29. NITROGLYCERIN [Concomitant]
     Active Substance: NITROGLYCERIN
     Dosage: DOSE UNKNOWN
     Route: 041
  30. ADONA [Concomitant]
     Dosage: DOSE UNKNOWN
     Route: 041
  31. TRANSAMIN [Concomitant]
     Active Substance: TRANEXAMIC ACID
     Dosage: DOSE UNKNOWN
     Route: 041
  32. HEPARIN CALCIUM [Concomitant]
     Active Substance: HEPARIN CALCIUM
     Dosage: DOSE UNKNOWN
     Route: 058
  33. HEPARIN SODIUM [Concomitant]
     Active Substance: HEPARIN SODIUM
     Dosage: DOSE UNKNOWN
     Route: 042
  34. PRIMPERAN [Concomitant]
     Active Substance: METOCLOPRAMIDE HYDROCHLORIDE
     Dosage: DOSE UNKNOWN
     Route: 042
  35. CARPERITIDE [Concomitant]
     Active Substance: CARPERITIDE
     Dosage: DOSE UNKNOWN
     Route: 041
  36. ALBUMIN HUMAN [Concomitant]
     Active Substance: ALBUMIN HUMAN
     Indication: Pulmonary congestion
     Dosage: DOSE UNKNOWN
     Dates: start: 20221107
  37. AMPICILLIN SODIUM\SULBACTAM SODIUM [Concomitant]
     Active Substance: AMPICILLIN SODIUM\SULBACTAM SODIUM
     Indication: Pulmonary congestion
     Dosage: DOSE UNKNOWN
     Dates: start: 20221107
  38. TORSEMIDE [Concomitant]
     Active Substance: TORSEMIDE
     Indication: Cardiac failure congestive
     Dates: start: 20221110, end: 20230107

REACTIONS (5)
  - Acute respiratory distress syndrome [Fatal]
  - Cardiac failure congestive [Fatal]
  - Platelet count decreased [Recovering/Resolving]
  - Atrial fibrillation [Recovering/Resolving]
  - Pneumonia bacterial [Fatal]

NARRATIVE: CASE EVENT DATE: 20221226
